FAERS Safety Report 24198420 (Version 1)
Quarter: 2024Q3

REPORT INFORMATION
  Report Type: Spontaneous
  Country: IT (occurrence: IT)
  Receive Date: 20240812
  Receipt Date: 20240812
  Transmission Date: 20241016
  Serious: Yes (Hospitalization, Other)
  Sender: BRISTOL MYERS SQUIBB
  Company Number: None

PATIENT
  Age: 60 Year
  Sex: Male
  Weight: 77 kg

DRUGS (1)
  1. YERVOY [Suspect]
     Active Substance: IPILIMUMAB
     Indication: Choroid melanoma
     Dosage: 3 MG/KG/3 QW
     Route: 042
     Dates: start: 20240718

REACTIONS (2)
  - Diabetic ketoacidosis [Recovering/Resolving]
  - Hashitoxicosis [Recovering/Resolving]

NARRATIVE: CASE EVENT DATE: 20240727
